FAERS Safety Report 5888530-7 (Version None)
Quarter: 2008Q3

REPORT INFORMATION
  Report Type: 
  Country: None (occurrence: None)
  Receive Date: 20080918
  Receipt Date: 20080422
  Transmission Date: 20090109
  Serious: No
  Sender: FDA-Public Use
  Company Number: US-B.I. PHARMACEUTICALS,INC./RIDGEFIELD-2008-BP-06321BP

PATIENT
  Sex: Female

DRUGS (4)
  1. MICARDIS [Suspect]
  2. COREG [Concomitant]
  3. TRICOR [Concomitant]
  4. SYNTHROID [Concomitant]

REACTIONS (1)
  - STOMACH DISCOMFORT [None]
